FAERS Safety Report 11415925 (Version 1)
Quarter: 2015Q3

REPORT INFORMATION
  Report Type: Spontaneous
  Country: US (occurrence: None)
  Receive Date: 20150824
  Receipt Date: 20150824
  Transmission Date: 20151125
  Serious: Yes (Hospitalization)
  Sender: FDA-Public Use
  Company Number: None

PATIENT
  Age: 52 Year
  Sex: Female
  Weight: 79.38 kg

DRUGS (6)
  1. KENALOG [Suspect]
     Active Substance: TRIAMCINOLONE ACETONIDE
     Indication: PULMONARY CONGESTION
     Dosage: 40MG 1 TIME IN THE BUTT
  2. CYMBALTA [Concomitant]
     Active Substance: DULOXETINE HYDROCHLORIDE
  3. X VIT D [Concomitant]
  4. LEVOTHYROXINE. [Concomitant]
     Active Substance: LEVOTHYROXINE
  5. MULTI VITAMIN [Concomitant]
     Active Substance: VITAMINS
  6. ATAVAN [Concomitant]

REACTIONS (8)
  - Tremor [None]
  - Insomnia [None]
  - Dizziness [None]
  - Panic attack [None]
  - Depression [None]
  - Bedridden [None]
  - Tinnitus [None]
  - Gastrointestinal pain [None]

NARRATIVE: CASE EVENT DATE: 20150724
